FAERS Safety Report 10537475 (Version 1)
Quarter: 2014Q4

REPORT INFORMATION
  Report Type: Spontaneous
  Country: US (occurrence: None)
  Receive Date: 20141022
  Receipt Date: 20141022
  Transmission Date: 20150529
  Serious: No
  Sender: FDA-Public Use
  Company Number: None

PATIENT
  Age: 44 Year
  Sex: Female
  Weight: 58.97 kg

DRUGS (1)
  1. PAROXETINE [Suspect]
     Active Substance: PAROXETINE\PAROXETINE HYDROCHLORIDE
     Indication: ANXIETY
     Dosage: 1 QD; ONCE DAILY
     Route: 048
     Dates: start: 20141011, end: 20141017

REACTIONS (7)
  - Anger [None]
  - Product substitution issue [None]
  - Agitation [None]
  - Feeling abnormal [None]
  - Fatigue [None]
  - Somnolence [None]
  - Bradyphrenia [None]

NARRATIVE: CASE EVENT DATE: 20141011
